FAERS Safety Report 23323823 (Version 1)
Quarter: 2023Q4

REPORT INFORMATION
  Report Type: Spontaneous
  Country: US (occurrence: US)
  Receive Date: 20231220
  Receipt Date: 20231220
  Transmission Date: 20240110
  Serious: No
  Sender: FDA-Public Use
  Company Number: US-ABBVIE-5541641

PATIENT
  Sex: Female

DRUGS (1)
  1. LATISSE [Suspect]
     Active Substance: BIMATOPROST
     Indication: Product used for unknown indication
     Dosage: DRUG STRENGTH 0.3MG/ML
     Route: 065

REACTIONS (3)
  - Device issue [Unknown]
  - Medical device pain [Unknown]
  - Drug ineffective [Unknown]
